FAERS Safety Report 23154569 (Version 2)
Quarter: 2024Q1

REPORT INFORMATION
  Report Type: Report from Study
  Country: US (occurrence: US)
  Receive Date: 20231107
  Receipt Date: 20240202
  Transmission Date: 20240409
  Serious: Yes (Other)
  Sender: FDA-Public Use
  Company Number: US-ABBVIE-5484455

PATIENT
  Sex: Female

DRUGS (3)
  1. SKYRIZI [Suspect]
     Active Substance: RISANKIZUMAB-RZAA
     Indication: Psoriasis
     Dosage: WEEK 4?STRENGTH:150MG/ML
     Route: 058
     Dates: start: 202307, end: 202307
  2. SKYRIZI [Suspect]
     Active Substance: RISANKIZUMAB-RZAA
     Indication: Psoriatic arthropathy
     Dosage: 150MG/ML?STRENGTH:WEEK 0
     Route: 058
     Dates: start: 20230613, end: 20230613
  3. SKYRIZI [Suspect]
     Active Substance: RISANKIZUMAB-RZAA
     Dosage: WEEK 12?STRENGTH:150MG/ML
     Route: 058
     Dates: start: 20231023

REACTIONS (5)
  - Surgery [Unknown]
  - Therapeutic product effect incomplete [Recovering/Resolving]
  - Exercise tolerance decreased [Unknown]
  - Psoriasis [Not Recovered/Not Resolved]
  - Arthralgia [Recovering/Resolving]

NARRATIVE: CASE EVENT DATE: 20230101
